FAERS Safety Report 16388829 (Version 1)
Quarter: 2019Q2

REPORT INFORMATION
  Report Type: Spontaneous
  Country: US (occurrence: US)
  Receive Date: 20190604
  Receipt Date: 20190604
  Transmission Date: 20190711
  Serious: Yes (Other)
  Sender: FDA-Public Use
  Company Number: US-PFIZER INC-2019233187

PATIENT
  Age: 51 Year
  Sex: Female

DRUGS (8)
  1. OXYGEN. [Concomitant]
     Active Substance: OXYGEN
     Dosage: UNK
  2. SILDENAFIL CITRATE. [Suspect]
     Active Substance: SILDENAFIL CITRATE
     Indication: PULMONARY ARTERIAL HYPERTENSION
     Dosage: 20 MG, 3X/DAY
     Dates: start: 20150811
  3. NAPROXEN. [Suspect]
     Active Substance: NAPROXEN
     Indication: PULMONARY ARTERIAL HYPERTENSION
     Dosage: UNK, 2X/DAY
  4. DIGOXIN. [Suspect]
     Active Substance: DIGOXIN
     Indication: PULMONARY ARTERIAL HYPERTENSION
     Dosage: 125 UG, 1X/DAY
  5. SELEXIPAG [Suspect]
     Active Substance: SELEXIPAG
     Indication: PULMONARY ARTERIAL HYPERTENSION
     Dosage: UNK
     Dates: start: 201711, end: 201810
  6. TORSEMIDE. [Suspect]
     Active Substance: TORSEMIDE
     Indication: PULMONARY ARTERIAL HYPERTENSION
     Dosage: 40 MG, 2X/DAY
  7. REMODULIN [Suspect]
     Active Substance: TREPROSTINIL
     Indication: PULMONARY ARTERIAL HYPERTENSION
     Dosage: UNK (2 NG EVERY WEEKS TO DOES OF 30 NG/KG/MIN)
  8. TYVASO [Suspect]
     Active Substance: TREPROSTINIL
     Indication: PULMONARY ARTERIAL HYPERTENSION
     Dosage: 9 DF, 4X/DAY
     Route: 055
     Dates: start: 201603, end: 201803

REACTIONS (7)
  - Back disorder [Unknown]
  - Back pain [Unknown]
  - Hypoxia [Unknown]
  - Fatigue [Unknown]
  - Oedema peripheral [Unknown]
  - Dyspnoea [Unknown]
  - Myalgia [Unknown]
